FAERS Safety Report 13714331 (Version 1)
Quarter: 2017Q3

REPORT INFORMATION
  Report Type: Spontaneous
  Country: US (occurrence: US)
  Receive Date: 20170704
  Receipt Date: 20170704
  Transmission Date: 20171127
  Serious: Yes (Other)
  Sender: FDA-Public Use
  Company Number: US-BAUSCH-BL-2017-020140

PATIENT
  Sex: Female

DRUGS (1)
  1. MYSOLINE [Suspect]
     Active Substance: PRIMIDONE
     Indication: ESSENTIAL TREMOR
     Dosage: STARTED 28-YEARS PRIOR TO THIS REPORT
     Route: 048

REACTIONS (2)
  - Lung infection [Unknown]
  - Off label use [Not Recovered/Not Resolved]
